FAERS Safety Report 20518129 (Version 3)
Quarter: 2022Q2

REPORT INFORMATION
  Report Type: Report from Study
  Country: US (occurrence: US)
  Receive Date: 20220225
  Receipt Date: 20220624
  Transmission Date: 20220721
  Serious: Yes (Hospitalization)
  Sender: FDA-Public Use
  Company Number: US-ABBVIE-22K-163-4292277-00

PATIENT
  Sex: Male
  Weight: 63.560 kg

DRUGS (11)
  1. IMBRUVICA [Suspect]
     Active Substance: IBRUTINIB
     Indication: Chronic lymphocytic leukaemia
     Route: 048
  2. IMBRUVICA [Suspect]
     Active Substance: IBRUTINIB
     Route: 048
  3. IMBRUVICA [Suspect]
     Active Substance: IBRUTINIB
     Route: 048
  4. CRESTOR [Concomitant]
     Active Substance: ROSUVASTATIN CALCIUM
     Indication: Arteriosclerosis
  5. LOMOTIL [Concomitant]
     Active Substance: ATROPINE SULFATE\DIPHENOXYLATE HYDROCHLORIDE
     Indication: Diarrhoea
  6. VITAMIN C [Concomitant]
     Active Substance: ASCORBIC ACID
     Indication: Supplementation therapy
  7. VITAMIN C [Concomitant]
     Active Substance: ASCORBIC ACID
     Indication: Asthma
  8. VITAMIN C [Concomitant]
     Active Substance: ASCORBIC ACID
     Indication: Seasonal allergy
  9. MODERNA COVID-19 VACCINE [Concomitant]
     Active Substance: ELASOMERAN
     Indication: COVID-19 immunisation
     Dosage: 1ST DOSE
     Route: 030
     Dates: start: 20210204, end: 20210204
  10. MODERNA COVID-19 VACCINE [Concomitant]
     Active Substance: ELASOMERAN
     Dosage: 2ND DOSE
     Route: 030
     Dates: start: 20210304, end: 20210304
  11. MODERNA COVID-19 VACCINE [Concomitant]
     Active Substance: ELASOMERAN
     Dosage: BOOSTER DOSE
     Route: 030
     Dates: start: 20211201, end: 20211201

REACTIONS (9)
  - Femur fracture [Recovering/Resolving]
  - Pneumonia [Recovered/Resolved]
  - Sensory disturbance [Recovering/Resolving]
  - Arteriosclerosis [Recovering/Resolving]
  - Angiopathy [Unknown]
  - Muscle spasms [Recovering/Resolving]
  - Myalgia [Recovering/Resolving]
  - Pain [Unknown]
  - Fall [Unknown]

NARRATIVE: CASE EVENT DATE: 20210101
